FAERS Safety Report 8582903-X (Version None)
Quarter: 2012Q3

REPORT INFORMATION
  Report Type: 
  Country: None (occurrence: None)
  Receive Date: 20120809
  Receipt Date: 20120803
  Transmission Date: 20120928
  Serious: Yes (Death)
  Sender: FDA-Public Use
  Company Number: DE-CUBIST-2012S1000104

PATIENT
  Age: 66 Year
  Weight: 112 kg

DRUGS (2)
  1. CUBICIN [Suspect]
     Indication: ENTEROCOCCAL INFECTION
     Route: 065
  2. CUBICIN [Suspect]
     Route: 065

REACTIONS (1)
  - DEATH [None]
